FAERS Safety Report 5952040-9 (Version None)
Quarter: 2008Q4

REPORT INFORMATION
  Report Type: 
  Country: None (occurrence: None)
  Receive Date: 20081113
  Receipt Date: 20080107
  Transmission Date: 20090506
  Serious: No
  Sender: FDA-Public Use
  Company Number: A0702480A

PATIENT

DRUGS (3)
  1. CARVEDILOL [Suspect]
     Indication: DRUG USE FOR UNKNOWN INDICATION
     Dosage: 12.5MG PER DAY
     Route: 048
  2. COREG [Suspect]
     Indication: DRUG USE FOR UNKNOWN INDICATION
     Route: 048
  3. ACE INHIBITOR [Concomitant]

REACTIONS (2)
  - OEDEMA PERIPHERAL [None]
  - THROAT TIGHTNESS [None]
